FAERS Safety Report 8743470 (Version 3)
Quarter: 2012Q4

REPORT INFORMATION
  Report Type: 
  Country: SE (occurrence: SE)
  Receive Date: 20120824
  Receipt Date: 20121015
  Transmission Date: 20130627
  Serious: Yes (Hospitalization, Other)
  Sender: FDA-Public Use
  Company Number: SE-BRISTOL-MYERS SQUIBB COMPANY-16855983

PATIENT
  Age: 82 Year
  Sex: Female

DRUGS (2)
  1. ORENCIA [Suspect]
     Dates: start: 20120525, end: 20120525
  2. METHOTREXATE [Suspect]
     Dates: start: 20120525, end: 20120525

REACTIONS (3)
  - Large intestinal ulcer haemorrhage [Recovered/Resolved with Sequelae]
  - Diverticular perforation [Recovered/Resolved with Sequelae]
  - Peritonitis [Unknown]
